FAERS Safety Report 9396230 (Version 2)
Quarter: 2013Q3

REPORT INFORMATION
  Report Type: Report from Study
  Country: FR (occurrence: FR)
  Receive Date: 20130711
  Receipt Date: 20130813
  Transmission Date: 20140515
  Serious: Yes (Hospitalization)
  Sender: FDA-Public Use
  Company Number: FR-GILEAD-2013-0078673

PATIENT
  Age: 48 Year
  Sex: Male

DRUGS (6)
  1. EMTRICITABINE/TENOFOVIR DISOPROXIL FUMARATE [Suspect]
     Indication: HIV INFECTION
     Dosage: 1 DF, QD
     Route: 048
     Dates: start: 20120308
  2. RALTEGRAVIR [Suspect]
     Indication: HIV INFECTION
     Dosage: 1 DF, QD
     Route: 048
     Dates: start: 20120308
  3. MYOLASTAN [Concomitant]
     Indication: PRODUCT USED FOR UNKNOWN INDICATION
  4. SPECIAFOLDINE [Concomitant]
     Indication: PRODUCT USED FOR UNKNOWN INDICATION
  5. STROMECTOL [Concomitant]
     Indication: PRODUCT USED FOR UNKNOWN INDICATION
  6. UVEDOSE [Concomitant]
     Indication: PRODUCT USED FOR UNKNOWN INDICATION

REACTIONS (1)
  - Autoimmune hepatitis [Not Recovered/Not Resolved]
